FAERS Safety Report 10036319 (Version 1)
Quarter: 2014Q1

REPORT INFORMATION
  Report Type: Spontaneous
  Country: CA (occurrence: CA)
  Receive Date: 20140325
  Receipt Date: 20140325
  Transmission Date: 20141002
  Serious: Yes (Hospitalization)
  Sender: FDA-Public Use
  Company Number: CA-IPSEN BIOPHARMACEUTICALS, INC.-2014-1328

PATIENT
  Age: 24 Year
  Sex: Male

DRUGS (1)
  1. SOMATULINE 90 MG [Suspect]
     Indication: ACROMEGALY
     Dosage: 90 MG
     Route: 058
     Dates: start: 20100902

REACTIONS (1)
  - Biliary colic [Recovered/Resolved]
